FAERS Safety Report 6526264-6 (Version None)
Quarter: 2009Q4

REPORT INFORMATION
  Report Type: 
  Country: None (occurrence: None)
  Receive Date: 20091228
  Receipt Date: 20091215
  Transmission Date: 20100525
  Serious: Yes (Other)
  Sender: FDA-Public Use
  Company Number: 234378J09USA

PATIENT
  Age: 44 Year
  Sex: Female

DRUGS (1)
  1. REBIF [Suspect]
     Indication: MULTIPLE SCLEROSIS
     Dosage: 44 MCG, 3 IN 1 WEEKS, SUBCUTANEOUS
     Route: 058
     Dates: start: 20090914

REACTIONS (6)
  - DRUG INEFFECTIVE [None]
  - ERYTHEMA [None]
  - FEELING HOT [None]
  - INJECTION SITE REACTION [None]
  - MEMORY IMPAIRMENT [None]
  - PYREXIA [None]
